FAERS Safety Report 20429679 (Version 1)
Quarter: 2022Q1

REPORT INFORMATION
  Report Type: Report from Study
  Country: FR (occurrence: FR)
  Receive Date: 20220204
  Receipt Date: 20220204
  Transmission Date: 20220423
  Serious: Yes (Other)
  Sender: FDA-Public Use
  Company Number: FR-SERVIER-S19009943

PATIENT

DRUGS (8)
  1. ONCASPAR [Suspect]
     Active Substance: PEGASPARGASE
     Indication: Acute lymphocytic leukaemia
     Dosage: 637.5 IU, QD, D12
     Route: 042
     Dates: start: 20170204, end: 20170204
  2. ONCASPAR [Suspect]
     Active Substance: PEGASPARGASE
     Dosage: 637.5 IU, QD, D26
     Dates: start: 20170218, end: 20170218
  3. BACTRIM [Concomitant]
     Active Substance: SULFAMETHOXAZOLE\TRIMETHOPRIM
     Indication: Product used for unknown indication
     Dosage: 200 MG, QD
     Route: 048
     Dates: start: 20170130
  4. Calcidose [Concomitant]
     Indication: Calcium deficiency
     Dosage: 500 MG, QD
     Route: 048
     Dates: start: 20170130, end: 20170227
  5. Calcidose [Concomitant]
     Dosage: 500 MG, QD
     Route: 048
     Dates: start: 20170405, end: 20170518
  6. CHOLECALCIFEROL [Concomitant]
     Active Substance: CHOLECALCIFEROL
     Indication: Vitamin supplementation
     Dosage: 100 KU/L, QD
     Route: 048
     Dates: start: 20170130
  7. TN UNSPECIFIED [Concomitant]
     Indication: Product used for unknown indication
     Dosage: UNK
     Route: 065
     Dates: start: 20170130, end: 20170228
  8. POLYETHYLENE GLYCOL 4000 [Concomitant]
     Active Substance: POLYETHYLENE GLYCOL 4000
     Indication: Constipation
     Dosage: 4 G, QD
     Route: 048
     Dates: start: 20170130, end: 20170228

REACTIONS (1)
  - Gamma-glutamyltransferase increased [Recovered/Resolved]

NARRATIVE: CASE EVENT DATE: 20170225
